FAERS Safety Report 6762031-6 (Version None)
Quarter: 2010Q2

REPORT INFORMATION
  Report Type: 
  Country: None (occurrence: None)
  Receive Date: 20100609
  Receipt Date: 20100604
  Transmission Date: 20101027
  Serious: Yes (Other)
  Sender: FDA-Public Use
  Company Number: ES-BRISTOL-MYERS SQUIBB COMPANY-15031735

PATIENT
  Age: 42 Year
  Sex: Male

DRUGS (6)
  1. SPRYCEL [Suspect]
     Indication: CHRONIC MYELOID LEUKAEMIA
     Dates: start: 20100301
  2. FOLIC ACID [Concomitant]
  3. EPOGEN [Concomitant]
  4. OMEPRAZOLE [Concomitant]
  5. OLANZAPINE [Concomitant]
  6. PAROXETINE HCL [Concomitant]

REACTIONS (2)
  - GRAFT VERSUS HOST DISEASE [None]
  - VISION BLURRED [None]
